FAERS Safety Report 10153241 (Version 1)
Quarter: 2014Q2

REPORT INFORMATION
  Report Type: Spontaneous
  Country: IT (occurrence: IT)
  Receive Date: 20140505
  Receipt Date: 20140505
  Transmission Date: 20141212
  Serious: Yes (Other)
  Sender: FDA-Public Use
  Company Number: IT-ASTRAZENECA-2014SE29695

PATIENT
  Age: 21357 Day
  Sex: Female

DRUGS (1)
  1. SEROQUEL [Suspect]
     Route: 048
     Dates: start: 20131017, end: 20131017

REACTIONS (3)
  - Syncope [Recovering/Resolving]
  - Hepatic enzyme increased [Recovering/Resolving]
  - Medication error [Recovering/Resolving]
